FAERS Safety Report 16027770 (Version 1)
Quarter: 2019Q1

REPORT INFORMATION
  Report Type: Spontaneous
  Country: JP (occurrence: JP)
  Receive Date: 20190304
  Receipt Date: 20190304
  Transmission Date: 20190418
  Serious: Yes (Other)
  Sender: FDA-Public Use
  Company Number: JP-GLAXOSMITHKLINE-JP2019JPN035025

PATIENT
  Age: 6 Decade
  Sex: Female

DRUGS (2)
  1. FLUTIDE DISKUS [Suspect]
     Active Substance: FLUTICASONE PROPIONATE
     Dosage: UNK, BID
     Route: 055
  2. SERETIDE [Suspect]
     Active Substance: FLUTICASONE PROPIONATE\SALMETEROL XINAFOATE
     Dosage: UNK, BID
     Route: 055

REACTIONS (7)
  - Initial insomnia [Unknown]
  - Bronchial disorder [Unknown]
  - Cardiac discomfort [Unknown]
  - Bronchostenosis [Unknown]
  - Euphoric mood [Unknown]
  - Treatment noncompliance [Unknown]
  - Palpitations [Unknown]
